FAERS Safety Report 15714356 (Version 1)
Quarter: 2018Q4

REPORT INFORMATION
  Report Type: Spontaneous
  Country: FR (occurrence: FR)
  Receive Date: 20181212
  Receipt Date: 20181212
  Transmission Date: 20190205
  Serious: Yes (Hospitalization, Other)
  Sender: FDA-Public Use
  Company Number: FR-JNJFOC-20181203674

PATIENT
  Age: 62 Year
  Sex: Female
  Weight: 62 kg

DRUGS (11)
  1. THERALENE [Concomitant]
     Active Substance: TRIMEPRAZINE
     Indication: SLEEP DISORDER
     Route: 048
     Dates: start: 20180619, end: 201809
  2. IMOVANE [Concomitant]
     Active Substance: ZOPICLONE
     Indication: SLEEP DISORDER
     Route: 048
     Dates: start: 20180618, end: 20180915
  3. RISPERIDONE. [Suspect]
     Active Substance: RISPERIDONE
     Indication: DEPRESSION
     Route: 048
     Dates: start: 20180808, end: 201809
  4. XANAX [Concomitant]
     Active Substance: ALPRAZOLAM
     Route: 048
     Dates: start: 20180501
  5. EFFEXOR [Suspect]
     Active Substance: VENLAFAXINE HYDROCHLORIDE
     Indication: DEPRESSION
     Route: 048
     Dates: start: 20180813, end: 201809
  6. MOVICOL [Concomitant]
     Active Substance: POLYETHYLENE GLYCOL 3350\POTASSIUM CHLORIDE\SODIUM BICARBONATE\SODIUM CHLORIDE
     Route: 048
  7. SULFARLEM [Concomitant]
     Active Substance: ANETHOLTRITHION
     Route: 048
     Dates: start: 20180624
  8. THERALENE [Concomitant]
     Active Substance: TRIMEPRAZINE
     Indication: SLEEP DISORDER
     Route: 048
     Dates: start: 20180619, end: 201809
  9. MIRTAZAPINE. [Concomitant]
     Active Substance: MIRTAZAPINE
     Route: 048
     Dates: start: 20180620
  10. LAMICTAL [Suspect]
     Active Substance: LAMOTRIGINE
     Indication: DEPRESSION
     Route: 048
     Dates: start: 20180802, end: 201809
  11. TERCIAN [Concomitant]
     Active Substance: CYAMEMAZINE
     Route: 048
     Dates: start: 20180825, end: 20180916

REACTIONS (1)
  - Drug reaction with eosinophilia and systemic symptoms [Recovering/Resolving]

NARRATIVE: CASE EVENT DATE: 20180908
